FAERS Safety Report 25788184 (Version 1)
Quarter: 2025Q3

REPORT INFORMATION
  Report Type: Spontaneous
  Country: US (occurrence: US)
  Receive Date: 20250910
  Receipt Date: 20250910
  Transmission Date: 20251021
  Serious: Yes (Hospitalization)
  Sender: NOVO NORDISK
  Company Number: US-NOVOPROD-1515998

PATIENT
  Age: 79 Year
  Sex: Male

DRUGS (1)
  1. TRESIBA [Suspect]
     Active Substance: INSULIN DEGLUDEC
     Indication: Latent autoimmune diabetes in adults
     Dosage: 30 IU, QD
     Route: 058
     Dates: start: 202501

REACTIONS (3)
  - Back disorder [Unknown]
  - Spinal operation [Not Recovered/Not Resolved]
  - Post procedural fever [Recovered/Resolved]

NARRATIVE: CASE EVENT DATE: 20250709
